FAERS Safety Report 22054979 (Version 1)
Quarter: 2023Q1

REPORT INFORMATION
  Report Type: Spontaneous
  Country: JP (occurrence: None)
  Receive Date: 20230302
  Receipt Date: 20230302
  Transmission Date: 20230417
  Serious: Yes (Other)
  Sender: FDA-Public Use
  Company Number: 2022A417635

PATIENT
  Age: 49 Year
  Sex: Female
  Weight: 45 kg

DRUGS (9)
  1. TEZSPIRE [Suspect]
     Active Substance: TEZEPELUMAB-EKKO
     Indication: Asthma
     Route: 058
     Dates: start: 20221021
  2. GLYCOPYRROLATE\INDACATEROL\MOMETASONE FUROATE [Concomitant]
     Active Substance: GLYCOPYRROLATE\INDACATEROL\MOMETASONE FUROATE
     Indication: Asthma
     Dosage: HIGH DOSE, POWDER
     Route: 055
     Dates: start: 20220401
  3. MONTELUKAST [Concomitant]
     Active Substance: MONTELUKAST SODIUM
     Indication: Asthma
     Route: 048
  4. LEVOCETIRIZINE HYDROCHLORIDE [Concomitant]
     Active Substance: LEVOCETIRIZINE HYDROCHLORIDE
     Indication: Rhinitis allergic
     Route: 048
  5. PREDONINE [Concomitant]
     Active Substance: PREDNISOLONE
     Indication: Asthma
     Route: 048
     Dates: end: 20221113
  6. PREDONINE [Concomitant]
     Active Substance: PREDNISOLONE
     Indication: Asthma
     Route: 048
     Dates: start: 20221114
  7. CLARITHROMYCIN [Concomitant]
     Active Substance: CLARITHROMYCIN
     Indication: Asthma
     Route: 048
     Dates: start: 20220218
  8. ALENDRONATE [Concomitant]
     Active Substance: ALENDRONATE SODIUM
     Indication: Osteoporosis
     Route: 048
  9. MOMETASONE [Concomitant]
     Active Substance: MOMETASONE
     Indication: Rhinitis allergic
     Route: 045

REACTIONS (2)
  - Chest pain [Recovered/Resolved]
  - Musculoskeletal pain [Recovered/Resolved]

NARRATIVE: CASE EVENT DATE: 20221115
